FAERS Safety Report 5726439-X (Version None)
Quarter: 2008Q2

REPORT INFORMATION
  Report Type: 
  Country: None (occurrence: None)
  Receive Date: 20080502
  Receipt Date: 20080430
  Transmission Date: 20081010
  Serious: Yes (Hospitalization)
  Sender: FDA-Public Use
  Company Number: B0511829A

PATIENT
  Age: 53 Year
  Sex: Male

DRUGS (8)
  1. ZYBAN [Suspect]
     Indication: SMOKING CESSATION THERAPY
     Dosage: 300MG PER DAY
     Route: 048
     Dates: start: 20080109, end: 20080301
  2. CORTISONE [Concomitant]
  3. SINGULAIR [Concomitant]
     Indication: ASTHMA
     Dosage: 10MG PER DAY
     Route: 048
  4. FLIXOTIDE [Concomitant]
  5. ATROVENT COMP [Concomitant]
     Indication: ASTHMA
     Route: 055
  6. SERETIDE [Concomitant]
     Indication: ASTHMA
     Route: 055
  7. PREDNISOLONE [Concomitant]
     Indication: RHEUMATOID ARTHRITIS
     Dosage: 20MG PER DAY
     Route: 048
  8. IMOVANE [Concomitant]
     Indication: SOMNOLENCE
     Dosage: 7.5MG PER DAY
     Route: 048

REACTIONS (3)
  - PSORIASIS [None]
  - RASH GENERALISED [None]
  - RASH MACULAR [None]
